FAERS Safety Report 17709501 (Version 2)
Quarter: 2024Q3

REPORT INFORMATION
  Report Type: Spontaneous
  Country: PT (occurrence: PT)
  Receive Date: 20200427
  Receipt Date: 20240708
  Transmission Date: 20241017
  Serious: Yes (Hospitalization, Other)
  Sender: AUROBINDO
  Company Number: PT-PHARMALEX-202000428

PATIENT
  Age: 63 Year
  Sex: Female

DRUGS (2)
  1. CIPROFLOXACIN [Suspect]
     Active Substance: CIPROFLOXACIN
     Indication: Product used for unknown indication
     Dosage: UNK
     Route: 065
  2. NORFLOXACIN [Suspect]
     Active Substance: NORFLOXACIN
     Indication: Cystitis
     Dosage: UNK
     Route: 065

REACTIONS (9)
  - Fixed eruption [Recovered/Resolved]
  - Arthralgia [Recovered/Resolved]
  - Pyrexia [Recovered/Resolved]
  - Malaise [Recovered/Resolved]
  - Cross sensitivity reaction [Recovered/Resolved with Sequelae]
  - Treatment noncompliance [Unknown]
  - Skin hyperpigmentation [Recovered/Resolved]
  - Rash erythematous [Recovered/Resolved]
  - Skin plaque [Recovered/Resolved]
